FAERS Safety Report 22620705 (Version 2)
Quarter: 2023Q2

REPORT INFORMATION
  Report Type: Spontaneous
  Country: US (occurrence: US)
  Receive Date: 20230620
  Receipt Date: 20230623
  Transmission Date: 20230722
  Serious: Yes (Other)
  Sender: FDA-Public Use
  Company Number: US-MLMSERVICE-20230608-4329347-1

PATIENT
  Age: 69 Year
  Sex: Male

DRUGS (2)
  1. POTASSIUM CHLORIDE [Suspect]
     Active Substance: POTASSIUM CHLORIDE
     Indication: Blood potassium decreased
     Dosage: DOSE OF IV POTASSIUM CHLORIDE 40 MEQ/100 ML, MEDICATION WAS INFUSED VIA THE CVC AT RATE OF 10 MEQ/H
     Route: 042
  2. HEPARIN [Concomitant]
     Active Substance: HEPARIN SODIUM

REACTIONS (2)
  - Chest pain [Recovered/Resolved]
  - Catheter site phlebitis [Recovered/Resolved]
